FAERS Safety Report 18910002 (Version 1)
Quarter: 2021Q1

REPORT INFORMATION
  Report Type: Spontaneous
  Country: US (occurrence: US)
  Receive Date: 20210218
  Receipt Date: 20210218
  Transmission Date: 20210420
  Serious: Yes (Hospitalization)
  Sender: FDA-Public Use
  Company Number: None

PATIENT
  Age: 50 Year
  Sex: Female
  Weight: 72.6 kg

DRUGS (9)
  1. FERROUS GLUCONATE [Concomitant]
     Active Substance: FERROUS GLUCONATE
  2. AZATHIOPRINE. [Concomitant]
     Active Substance: AZATHIOPRINE
  3. CIPRO [Concomitant]
     Active Substance: CIPROFLOXACIN HYDROCHLORIDE
  4. MVI [Concomitant]
     Active Substance: VITAMINS
  5. BIOTIN [Concomitant]
     Active Substance: BIOTIN
  6. METRONIDAZOLE. [Concomitant]
     Active Substance: METRONIDAZOLE
  7. CHOLECALCIFEROL (VITAMIN D) [Concomitant]
  8. CALCIUM CARBONATE?VIT?D?MIN [Concomitant]
  9. REMICADE [Suspect]
     Active Substance: INFLIXIMAB

REACTIONS (4)
  - Malaise [None]
  - Anal fistula [None]
  - Perirectal abscess [None]
  - White blood cell count increased [None]

NARRATIVE: CASE EVENT DATE: 20190714
